FAERS Safety Report 4456258-6 (Version None)
Quarter: 2004Q3

REPORT INFORMATION
  Report Type: 
  Country: None (occurrence: None)
  Receive Date: 20040920
  Receipt Date: 20040907
  Transmission Date: 20050211
  Serious: Yes (Other)
  Sender: FDA-Public Use
  Company Number: 2004063247

PATIENT
  Age: 17 Month
  Sex: Male
  Weight: 14.0615 kg

DRUGS (2)
  1. ZARONTIN SYRUP [Suspect]
     Indication: PETIT MAL EPILEPSY
     Dosage: ORAL
     Route: 048
     Dates: start: 20040809
  2. FLUORIDE (FLUORIDE) [Concomitant]

REACTIONS (2)
  - PHARMACEUTICAL PRODUCT COMPLAINT [None]
  - VOMITING [None]
